FAERS Safety Report 14168608 (Version 1)
Quarter: 2017Q4

REPORT INFORMATION
  Report Type: Spontaneous
  Country: NO (occurrence: NO)
  Receive Date: 20171108
  Receipt Date: 20171108
  Transmission Date: 20180321
  Serious: Yes (Life-Threatening, Hospitalization)
  Sender: FDA-Public Use
  Company Number: NO-ACCORD-060907

PATIENT
  Age: 74 Year
  Sex: Female

DRUGS (7)
  1. PREDNISOLONE. [Suspect]
     Active Substance: PREDNISOLONE
     Indication: RHEUMATOID ARTHRITIS
     Dates: start: 2008
  2. FOLSYRE NAF [Concomitant]
     Active Substance: FOLIC ACID
  3. METHOTREXATE. [Suspect]
     Active Substance: METHOTREXATE
     Indication: RHEUMATOID ARTHRITIS
     Dosage: MIGHT HAVE USED THE MEDICATION DAILY
     Dates: start: 2008, end: 201709
  4. DETRUSITOL [Concomitant]
     Active Substance: TOLTERODINE TARTRATE
  5. RENITEC COMP [Concomitant]
     Active Substance: ENALAPRIL MALEATE\HYDROCHLOROTHIAZIDE
     Indication: HYPERTENSION
  6. EZETROL [Concomitant]
     Active Substance: EZETIMIBE
  7. SOMAC [Concomitant]
     Active Substance: PANTOPRAZOLE SODIUM

REACTIONS (5)
  - Agranulocytosis [Recovering/Resolving]
  - Herpes simplex [Unknown]
  - Mucosal inflammation [Unknown]
  - Bacterial infection [Unknown]
  - Pancytopenia [Unknown]

NARRATIVE: CASE EVENT DATE: 201709
